FAERS Safety Report 5820740-7 (Version None)
Quarter: 2008Q3

REPORT INFORMATION
  Report Type: 
  Country: None (occurrence: None)
  Receive Date: 20080724
  Receipt Date: 20080516
  Transmission Date: 20090109
  Serious: Yes (Life-Threatening, Other)
  Sender: FDA-Public Use
  Company Number: A0718957A

PATIENT
  Sex: Female
  Weight: 53.2 kg

DRUGS (2)
  1. AVANDIA [Suspect]
     Route: 048
     Dates: start: 20050101, end: 20080401
  2. LANTUS [Concomitant]

REACTIONS (1)
  - PLEURAL EFFUSION [None]
